FAERS Safety Report 21055248 (Version 2)
Quarter: 2022Q3

REPORT INFORMATION
  Report Type: Spontaneous
  Country: US (occurrence: US)
  Receive Date: 20220708
  Receipt Date: 20220708
  Transmission Date: 20221027
  Serious: Yes (Hospitalization, Other)
  Sender: FDA-Public Use
  Company Number: US-BoehringerIngelheim-2022-BI-180597

PATIENT
  Sex: Male

DRUGS (1)
  1. JARDIANCE [Suspect]
     Active Substance: EMPAGLIFLOZIN
     Indication: Type 2 diabetes mellitus
     Dates: start: 202111, end: 202206

REACTIONS (4)
  - Diabetic ketoacidosis [Recovered/Resolved]
  - Dehydration [Unknown]
  - Blood glucose increased [Unknown]
  - Glycosylated haemoglobin abnormal [Unknown]
